FAERS Safety Report 4291374-3 (Version None)
Quarter: 2004Q1

REPORT INFORMATION
  Report Type: 
  Country: None (occurrence: None)
  Receive Date: 20040126
  Receipt Date: 20030912
  Transmission Date: 20041129
  Serious: No
  Sender: FDA-Public Use
  Company Number: USA030947081

PATIENT
  Age: 73 Year
  Sex: Male
  Weight: 54 kg

DRUGS (4)
  1. FORTEO [Suspect]
     Indication: OSTEOPOROSIS
     Dates: start: 20030201
  2. FIORINAL [Concomitant]
  3. PREDNISONE [Concomitant]
  4. ZOLOFT [Concomitant]

REACTIONS (1)
  - INJECTION SITE PAIN [None]
